FAERS Safety Report 8472713-6 (Version None)
Quarter: 2012Q2

REPORT INFORMATION
  Report Type: 
  Country: None (occurrence: None)
  Receive Date: 20120627
  Receipt Date: 20120618
  Transmission Date: 20120825
  Serious: Yes (Death, Hospitalization, Other)
  Sender: FDA-Public Use
  Company Number: TW-PFIZER INC-2012139388

PATIENT
  Age: 69 Year
  Sex: Male
  Weight: 53.4 kg

DRUGS (25)
  1. TRANSAMINE CAP [Concomitant]
     Dosage: 250 MG, 4X/DAY (Q6H)
     Dates: start: 20120301, end: 20120330
  2. SOLU-CORTEF [Concomitant]
     Dosage: 100 MG, 3X/DAY (Q8H)
     Route: 042
     Dates: start: 20120301, end: 20120329
  3. MEROPENEM [Suspect]
     Dosage: 1 G, 2X/DAY (Q12H)
     Route: 042
     Dates: start: 20120406, end: 20120412
  4. NUTRASE [Concomitant]
     Dosage: 100 MG, 1X/DAY (QD)
     Dates: start: 20120301, end: 20120323
  5. ACETYLCYSTEINE [Concomitant]
     Dosage: 200 MG, 4X/DAY (QID)
     Route: 048
     Dates: start: 20120301, end: 20120414
  6. UNASYN [Concomitant]
     Dosage: 1.5 G, 2X/DAY (Q12H)
     Route: 042
     Dates: start: 20120313, end: 20120316
  7. SINEMET [Concomitant]
     Dosage: 125 MG, 3X/DAY (TID)
     Route: 048
     Dates: start: 20120301, end: 20120321
  8. SENNAPUR [Concomitant]
     Dosage: 25 MG, 1X/DAY (HS)
     Route: 048
     Dates: end: 20120326
  9. DIFLUCAN [Concomitant]
     Dosage: 200 MG, 1X/DAY (QD)
     Route: 042
     Dates: end: 20120406
  10. METOCLOPRAMIDE [Concomitant]
     Dosage: 7.68 MG, 4X/DAY(QID)
     Dates: start: 20120301, end: 20120319
  11. PANTOPRAZOLE [Concomitant]
     Dosage: 40 MG, 1X/DAY (QD)
     Route: 048
     Dates: start: 20120301, end: 20120402
  12. TRANSAMINE CAP [Concomitant]
     Dosage: 250 MG, 4X/DAY (QID)
     Route: 048
     Dates: start: 20120301
  13. DILANTIN [Suspect]
     Dosage: 100 MG, 2X/DAY (BID)
     Route: 048
     Dates: start: 20120321, end: 20120416
  14. LIPITOR [Concomitant]
     Dosage: 5 MG, 1X/DAY
     Route: 048
     Dates: start: 20120301, end: 20120323
  15. CORDARONE [Concomitant]
     Dosage: 200 MG, 2X/DAY (BID)
     Route: 048
     Dates: start: 20120301, end: 20120321
  16. NEXIUM [Concomitant]
     Dosage: 40 MG, 1X/DAY (QD)
     Route: 048
     Dates: start: 20120401, end: 20120401
  17. THIAMAZOLE [Concomitant]
     Dosage: 5 MG, 2X/DAY (BID)
     Route: 048
     Dates: start: 20120401, end: 20120405
  18. PROPYLTHIOURACIL [Concomitant]
     Dosage: 50 MG, ALTERNATE DAY
     Route: 048
     Dates: start: 20120401, end: 20120412
  19. PHENYTOIN SODIUM CAP [Suspect]
     Indication: CONVULSION
     Dosage: 100 MG, 3X/DAY (Q8H)
     Route: 042
     Dates: start: 20120314, end: 20120316
  20. DILANTIN [Suspect]
     Indication: CONVULSION
     Dosage: 300 MG, 1X/DAY (HS)
     Route: 048
     Dates: start: 20120317, end: 20120320
  21. LEVETIRACETAM [Concomitant]
     Dosage: 500 MG, 1X/DAY
     Route: 048
     Dates: start: 20120301, end: 20120323
  22. CEFTRIAXONE [Concomitant]
     Dosage: 2 G, 2X/DAY (Q12H)
     Route: 042
     Dates: start: 20120301, end: 20120323
  23. MECOBALAMIN [Concomitant]
     Dosage: 500 UG, 2X/DAY (BID)
     Route: 048
     Dates: start: 20120301, end: 20120414
  24. EMETROL [Concomitant]
     Dosage: 10 MG, 3X/DAY (TID)
     Route: 048
     Dates: start: 20120301, end: 20120320
  25. FUROSEMIDE [Concomitant]
     Dosage: 40 MG, 2X/DAY (BID)
     Route: 048
     Dates: start: 20120301, end: 20120330

REACTIONS (5)
  - DRUG RASH WITH EOSINOPHILIA AND SYSTEMIC SYMPTOMS [None]
  - RENAL FAILURE ACUTE [None]
  - CARDIAC FAILURE CONGESTIVE [None]
  - SEPTIC SHOCK [None]
  - PNEUMONIA [None]
